FAERS Safety Report 7202389-7 (Version None)
Quarter: 2010Q4

REPORT INFORMATION
  Report Type: 
  Country: None (occurrence: None)
  Receive Date: 20101229
  Receipt Date: 20101221
  Transmission Date: 20110411
  Serious: No
  Sender: FDA-Public Use
  Company Number: US-PFIZER INC-2010177973

PATIENT
  Sex: Female

DRUGS (5)
  1. NARDIL [Suspect]
     Indication: DEPRESSION
     Dosage: 30 MG, 2X/DAY
     Route: 048
     Dates: start: 19780101
  2. *TIOTROPIUM BROMIDE [Suspect]
     Indication: EMPHYSEMA
     Dosage: UNK
     Dates: start: 20100101, end: 20100101
  3. *TIOTROPIUM BROMIDE [Suspect]
     Indication: DYSPNOEA
  4. ADVAIR HFA [Suspect]
     Indication: EMPHYSEMA
     Dosage: UNK
     Dates: start: 20100101, end: 20100101
  5. ADVAIR HFA [Suspect]
     Indication: DYSPNOEA

REACTIONS (2)
  - HEADACHE [None]
  - MIGRAINE [None]
